FAERS Safety Report 24422368 (Version 1)
Quarter: 2024Q4

REPORT INFORMATION
  Report Type: Report from Study
  Country: US (occurrence: US)
  Receive Date: 20241010
  Receipt Date: 20241010
  Transmission Date: 20250114
  Serious: Yes (Other)
  Sender: BAYER
  Company Number: US-BAYER-2024A062032

PATIENT
  Age: 49 Year
  Sex: Female

DRUGS (7)
  1. ADEMPAS [Suspect]
     Active Substance: RIOCIGUAT
     Indication: Pulmonary arterial hypertension
     Dosage: UNK
  2. ADEMPAS [Suspect]
     Active Substance: RIOCIGUAT
     Indication: Pulmonary arterial hypertension
     Dosage: 2 MG, TID
     Route: 048
     Dates: start: 202403
  3. ADEMPAS [Suspect]
     Active Substance: RIOCIGUAT
     Indication: Pulmonary arterial hypertension
     Dosage: .5 MG, TID
     Route: 048
     Dates: start: 202203
  4. ADEMPAS [Suspect]
     Active Substance: RIOCIGUAT
     Indication: Pulmonary arterial hypertension
     Dosage: 2 MG, TID
     Route: 048
     Dates: start: 202406
  5. OPSUMIT [Concomitant]
     Active Substance: MACITENTAN
  6. UPTRAVI [Concomitant]
     Active Substance: SELEXIPAG
  7. TORSEMIDE [Concomitant]
     Active Substance: TORSEMIDE

REACTIONS (20)
  - Loss of consciousness [None]
  - Syncope [None]
  - Ascites [None]
  - Headache [Not Recovered/Not Resolved]
  - Dizziness [None]
  - Product dose omission issue [None]
  - Headache [None]
  - Nausea [None]
  - Dizziness [None]
  - Flushing [None]
  - Dyspnoea exertional [None]
  - Generalised oedema [None]
  - Appetite disorder [None]
  - Product dose omission issue [None]
  - Peripheral swelling [None]
  - Fatigue [None]
  - Dizziness [None]
  - Joint swelling [None]
  - Product dose omission issue [None]
  - Anxiety [None]

NARRATIVE: CASE EVENT DATE: 20240101
